FAERS Safety Report 24918889 (Version 3)
Quarter: 2025Q1

REPORT INFORMATION
  Report Type: Spontaneous
  Country: CA (occurrence: CA)
  Receive Date: 20250204
  Receipt Date: 20250305
  Transmission Date: 20250408
  Serious: Yes (Other)
  Sender: CELLTRION
  Company Number: CA-PFIZER INC-202500020624

PATIENT

DRUGS (11)
  1. INFLECTRA [Suspect]
     Active Substance: INFLIXIMAB-DYYB
     Indication: Colitis ulcerative
     Route: 042
     Dates: start: 20231215, end: 20231215
  2. INFLECTRA [Suspect]
     Active Substance: INFLIXIMAB-DYYB
     Route: 042
     Dates: start: 20231228, end: 20240514
  3. INFLECTRA [Suspect]
     Active Substance: INFLIXIMAB-DYYB
     Route: 042
     Dates: start: 20240618
  4. INFLECTRA [Suspect]
     Active Substance: INFLIXIMAB-DYYB
     Route: 042
     Dates: start: 20250114
  5. INFLECTRA [Suspect]
     Active Substance: INFLIXIMAB-DYYB
     Route: 042
     Dates: start: 20250211
  6. ASPIRIN [Concomitant]
     Active Substance: ASPIRIN
  7. METOPROLOL [Concomitant]
     Active Substance: METOPROLOL
  8. PREDNISONE [Concomitant]
     Active Substance: PREDNISONE
  9. RAMIPRIL [Concomitant]
     Active Substance: RAMIPRIL
  10. ROSUVASTATIN [Concomitant]
     Active Substance: ROSUVASTATIN
  11. MESALAMINE [Concomitant]
     Active Substance: MESALAMINE

REACTIONS (1)
  - Joint injury [Unknown]
